FAERS Safety Report 4504109-3 (Version None)
Quarter: 2004Q4

REPORT INFORMATION
  Report Type: 
  Country: None (occurrence: None)
  Receive Date: 20041118
  Receipt Date: 20030519
  Transmission Date: 20050328
  Serious: Yes (Hospitalization)
  Sender: FDA-Public Use
  Company Number: PHHO2003US06533

PATIENT
  Age: 67 Year
  Sex: Female
  Weight: 78 kg

DRUGS (17)
  1. TRILEPTAL [Suspect]
     Indication: DIABETIC NEUROPATHY
     Route: 048
     Dates: start: 20030416, end: 20030516
  2. SEREVENT [Concomitant]
     Indication: ASTHMA
  3. FLOVENT [Concomitant]
     Indication: ASTHMA
  4. VENTOLIN [Concomitant]
     Indication: ASTHMA
  5. LANTUS [Concomitant]
     Indication: DIABETES MELLITUS
  6. HUMALOG [Concomitant]
     Indication: DIABETES MELLITUS
  7. ASPIRIN [Concomitant]
     Indication: TRANSIENT ISCHAEMIC ATTACK
  8. TUMS [Concomitant]
  9. METOPROLOL [Concomitant]
     Indication: HYPERTENSION
  10. ACCUPRIL [Concomitant]
     Indication: HYPERTENSION
  11. HYDROCHLOROTHIAZIDE [Concomitant]
     Indication: HYPERTENSION
  12. DIOVAN [Concomitant]
     Indication: HYPERTENSION
  13. SYNTHROID [Concomitant]
     Indication: HYPERTHYROIDISM
  14. GLYBURIDE [Concomitant]
     Indication: DIABETES MELLITUS
  15. PROZAC [Concomitant]
     Indication: DEPRESSION
  16. TRICOR [Concomitant]
     Indication: HYPERCHOLESTEROLAEMIA
  17. TRILEPTAL [Concomitant]

REACTIONS (7)
  - CONCOMITANT DISEASE PROGRESSION [None]
  - DUODENITIS [None]
  - GASTRITIS EROSIVE [None]
  - HIATUS HERNIA [None]
  - IMPAIRED GASTRIC EMPTYING [None]
  - NAUSEA [None]
  - VOMITING [None]
